FAERS Safety Report 4588987-8 (Version None)
Quarter: 2005Q1

REPORT INFORMATION
  Report Type: 
  Country: None (occurrence: None)
  Receive Date: 20050222
  Receipt Date: 20050111
  Transmission Date: 20050727
  Serious: Yes (Hospitalization, Other)
  Sender: FDA-Public Use
  Company Number: US-ABBOTT-05P-163-0286312-00

PATIENT
  Age: 51 Year
  Sex: Male

DRUGS (12)
  1. TARKA [Suspect]
     Indication: BLOOD PRESSURE INCREASED
     Dosage: 4MG/240 MG
     Dates: start: 20041115, end: 20050104
  2. TARKA [Suspect]
     Dosage: 2/180MG
     Route: 048
  3. CARVEDILOL [Concomitant]
     Indication: BLOOD PRESSURE
     Route: 048
     Dates: start: 20050105
  4. AVANDAMET [Concomitant]
     Indication: DIABETES MELLITUS
     Route: 048
     Dates: end: 20050101
  5. GABAPENTIN [Concomitant]
     Indication: DRUG USE FOR UNKNOWN INDICATION
     Route: 048
  6. PRANDIN [Concomitant]
     Indication: DIABETES MELLITUS
     Route: 048
     Dates: end: 20050101
  7. ATORVASTATIN [Concomitant]
     Indication: BLOOD CHOLESTEROL
     Route: 048
     Dates: start: 20041202, end: 20050101
  8. GLIPIZIDE [Concomitant]
     Indication: DIABETES MELLITUS
     Dates: start: 20050101
  9. ^GLUTOFATE^ [Concomitant]
     Indication: DRUG USE FOR UNKNOWN INDICATION
     Dosage: TIMES 2
  10. TRANTAL [Concomitant]
     Indication: DRUG USE FOR UNKNOWN INDICATION
  11. CLONIDINE [Concomitant]
     Indication: DRUG USE FOR UNKNOWN INDICATION
  12. FORTAMET [Concomitant]
     Indication: DIABETES MELLITUS

REACTIONS (8)
  - ANURIA [None]
  - BLOOD GLUCOSE INCREASED [None]
  - DYSURIA [None]
  - HYPERKALAEMIA [None]
  - PROSTATE INFECTION [None]
  - RENAL FAILURE [None]
  - URINARY RETENTION [None]
  - URINARY TRACT INFECTION [None]
